FAERS Safety Report 21017166 (Version 1)
Quarter: 2022Q2

REPORT INFORMATION
  Report Type: Spontaneous
  Country: US (occurrence: US)
  Receive Date: 20220628
  Receipt Date: 20220628
  Transmission Date: 20220721
  Serious: No
  Sender: FDA-Public Use
  Company Number: US-PFIZER INC-PV202200010084

PATIENT
  Age: 59 Year
  Sex: Female

DRUGS (2)
  1. LIPITOR [Suspect]
     Active Substance: ATORVASTATIN CALCIUM
     Indication: Blood cholesterol abnormal
     Dosage: UNK
  2. KESIMPTA [Suspect]
     Active Substance: OFATUMUMAB
     Dosage: UNK

REACTIONS (1)
  - COVID-19 [Unknown]
